FAERS Safety Report 10815735 (Version 1)
Quarter: 2015Q1

REPORT INFORMATION
  Report Type: Spontaneous
  Country: US (occurrence: US)
  Receive Date: 20150218
  Receipt Date: 20150218
  Transmission Date: 20150721
  Serious: No
  Sender: FDA-Public Use
  Company Number: US-ABBVIE-14K-163-1283463-00

PATIENT
  Sex: Male

DRUGS (1)
  1. HUMIRA [Suspect]
     Active Substance: ADALIMUMAB
     Indication: PSORIASIS

REACTIONS (4)
  - Staphylococcal infection [Not Recovered/Not Resolved]
  - Staphylococcal infection [Recovered/Resolved]
  - Adverse drug reaction [Unknown]
  - Upper respiratory tract infection [Unknown]
